FAERS Safety Report 9483206 (Version 1)
Quarter: 2013Q3

REPORT INFORMATION
  Report Type: Spontaneous
  Country: US (occurrence: US)
  Receive Date: 20130828
  Receipt Date: 20130828
  Transmission Date: 20140515
  Serious: No
  Sender: FDA-Public Use
  Company Number: US-MUTUAL PHARMACEUTICAL COMPANY, INC.-DXCY20120012

PATIENT
  Age: 13 Year
  Sex: Female
  Weight: 68.1 kg

DRUGS (1)
  1. DOXYCYCLINE [Suspect]
     Indication: ACNE
     Route: 048
     Dates: start: 20120821, end: 20120914

REACTIONS (3)
  - Abdominal pain [Unknown]
  - Abdominal distension [Unknown]
  - Lactose intolerance [Not Recovered/Not Resolved]
